FAERS Safety Report 15812383 (Version 3)
Quarter: 2020Q4

REPORT INFORMATION
  Report Type: Report from Study
  Country: DE (occurrence: DE)
  Receive Date: 20190111
  Receipt Date: 20201125
  Transmission Date: 20210113
  Serious: Yes (Death, Hospitalization, Other)
  Sender: FDA-Public Use
  Company Number: PHHY2018DE142853

PATIENT
  Age: 78 Year
  Sex: Male
  Weight: 68 kg

DRUGS (7)
  1. DIGITOXIN [Concomitant]
     Active Substance: DIGITOXIN
     Indication: ATRIAL FIBRILLATION
     Dosage: 0.5 MG, QD (1-0-0)
     Route: 065
     Dates: start: 20180910
  2. METOPROLOL SUCCINATE. [Concomitant]
     Active Substance: METOPROLOL SUCCINATE
     Indication: HYPERTENSION
     Dosage: 71.25 MG, BID  (1-0-1/2)
     Route: 065
  3. ELIQUIS [Concomitant]
     Active Substance: APIXABAN
     Indication: ATRIAL FIBRILLATION
     Dosage: 10 MG, BID (1-0-1)
     Route: 065
     Dates: start: 20180910
  4. EXJADE [Suspect]
     Active Substance: DEFERASIROX
     Indication: IRON OVERLOAD
     Dosage: 360 MG, (10.58 MG/KG BODYWEIGHT/DAY=2 TABLETS A 360MG)
     Route: 048
     Dates: start: 20180604
  5. ALLOPURINOL. [Concomitant]
     Active Substance: ALLOPURINOL
     Indication: PRODUCT USED FOR UNKNOWN INDICATION
     Dosage: 300 MG, QD (1-0-0)
     Route: 065
  6. CANDESARTAN. [Concomitant]
     Active Substance: CANDESARTAN
     Indication: CONGESTIVE CARDIOMYOPATHY
     Dosage: 8 MG, QD  (1-0-0)
     Route: 065
  7. TORASEMIDE [Concomitant]
     Active Substance: TORSEMIDE
     Indication: CONGESTIVE CARDIOMYOPATHY
     Dosage: 5 MG, QD (1-0-0)
     Route: 065

REACTIONS (5)
  - Hypokalaemia [Recovering/Resolving]
  - Plantar fasciitis [Recovering/Resolving]
  - Sepsis [Recovering/Resolving]
  - Urinary retention [Recovered/Resolved with Sequelae]
  - Death [Fatal]

NARRATIVE: CASE EVENT DATE: 20180831
